FAERS Safety Report 12872678 (Version 2)
Quarter: 2016Q4

REPORT INFORMATION
  Report Type: Spontaneous
  Country: JP (occurrence: JP)
  Receive Date: 20161021
  Receipt Date: 20161205
  Transmission Date: 20170207
  Serious: Yes (Other)
  Sender: FDA-Public Use
  Company Number: JP-009507513-1610JPN009345

PATIENT
  Age: 89 Year
  Sex: Male

DRUGS (5)
  1. RISPERIDONE. [Suspect]
     Active Substance: RISPERIDONE
     Indication: INSOMNIA
     Dosage: 1 MG, UNKNOWN
     Route: 048
     Dates: start: 20160826
  2. YOKU-KAN-SAN [Suspect]
     Active Substance: HERBALS
     Indication: INSOMNIA
     Dosage: UNK
     Dates: start: 20160901
  3. BELSOMRA [Suspect]
     Active Substance: SUVOREXANT
     Indication: INSOMNIA
     Dosage: 15 MG, QD
     Route: 048
     Dates: start: 20160917, end: 20160919
  4. ROZEREM [Suspect]
     Active Substance: RAMELTEON
     Indication: INSOMNIA
     Dosage: 8 MG, QD
     Route: 048
     Dates: start: 20160901
  5. LUNESTA [Suspect]
     Active Substance: ESZOPICLONE
     Indication: INSOMNIA
     Dosage: 2 MG, QD
     Route: 048
     Dates: start: 201608, end: 201609

REACTIONS (3)
  - Delirium [Not Recovered/Not Resolved]
  - Pneumonia [Unknown]
  - Restlessness [None]

NARRATIVE: CASE EVENT DATE: 20160919
